FAERS Safety Report 14619068 (Version 2)
Quarter: 2019Q1

REPORT INFORMATION
  Report Type: Spontaneous
  Country: US (occurrence: US)
  Receive Date: 20180309
  Receipt Date: 20190319
  Transmission Date: 20190417
  Serious: Yes (Hospitalization)
  Sender: FDA-Public Use
  Company Number: US-PFIZER INC-2017391375

PATIENT
  Age: 79 Year
  Sex: Female
  Weight: 72.56 kg

DRUGS (3)
  1. IBRANCE [Suspect]
     Active Substance: PALBOCICLIB
     Indication: BREAST CANCER METASTATIC
     Dosage: 125 MG, CYCLIC ( EVERY DAY  21 DAYS AND OFF FOR 8 DAYS.)
     Route: 048
     Dates: start: 201706
  2. IBRANCE [Suspect]
     Active Substance: PALBOCICLIB
     Dosage: 100 MG, CYCLIC (EVERY DAY  21 DAYS AND OFF FOR 8 DAYS)
     Route: 048
     Dates: start: 2018
  3. IBRANCE [Suspect]
     Active Substance: PALBOCICLIB
     Dosage: 100 MG, ONCE DAILY (IN THE MORNING WITH BREAKFAST) FOR 21 DAYS AND OFF FOR 8 DAYS;
     Route: 048
     Dates: start: 201707, end: 2018

REACTIONS (2)
  - Hip fracture [Recovering/Resolving]
  - Infection [Recovered/Resolved]

NARRATIVE: CASE EVENT DATE: 20180120
